FAERS Safety Report 5946488-6 (Version None)
Quarter: 2008Q4

REPORT INFORMATION
  Report Type: 
  Country: None (occurrence: None)
  Receive Date: 20081110
  Receipt Date: 20081107
  Transmission Date: 20090506
  Serious: Yes (Death)
  Sender: FDA-Public Use
  Company Number: A0755490A

PATIENT
  Age: 79 Year
  Sex: Male
  Weight: 47 kg

DRUGS (2)
  1. SERETIDE DISKUS [Suspect]
     Dosage: 1PUFF TWICE PER DAY
     Route: 055
     Dates: start: 20080801, end: 20081027
  2. SPIRIVA [Concomitant]
     Dates: start: 20080801, end: 20081027

REACTIONS (1)
  - RESPIRATORY FAILURE [None]
